FAERS Safety Report 4547915-1 (Version None)
Quarter: 2004Q4

REPORT INFORMATION
  Report Type: 
  Country: None (occurrence: None)
  Receive Date: 20041227
  Receipt Date: 20041021
  Transmission Date: 20050328
  Serious: No
  Sender: FDA-Public Use
  Company Number: 04P-163-0278109-00

PATIENT
  Age: 70 Year
  Sex: Female
  Weight: 42.2752 kg

DRUGS (9)
  1. HUMIRA [Suspect]
     Indication: RHEUMATOID ARTHRITIS
     Dosage: 40 MG, 1 IN 2 WK, SUBCUTANEOUS
     Route: 058
     Dates: start: 20041005
  2. CELECOXIB [Concomitant]
  3. LOTREL [Concomitant]
  4. CRESTOR [Concomitant]
  5. ESTROGENS CONJUGATED [Concomitant]
  6. PREDNISONE [Concomitant]
  7. LEVOTHYROXINE SODUIM [Concomitant]
  8. SPIRONOLACTONE [Concomitant]
  9. METHOTREXARE [Concomitant]

REACTIONS (2)
  - INJECTION SITE SWELLING [None]
  - RASH ERYTHEMATOUS [None]
